FAERS Safety Report 4994938-4 (Version None)
Quarter: 2006Q2

REPORT INFORMATION
  Report Type: 
  Country: None (occurrence: None)
  Receive Date: 20060503
  Receipt Date: 20060420
  Transmission Date: 20061013
  Serious: Yes (Hospitalization)
  Sender: FDA-Public Use
  Company Number: 224292

PATIENT
  Age: 40 Year
  Sex: Male
  Weight: 91.6 kg

DRUGS (3)
  1. AVASTIN [Suspect]
     Indication: PANCREATIC CARCINOMA
     Dosage: 1462 MG, Q3W, INTRAVENOUS
     Route: 042
     Dates: start: 20060227, end: 20060405
  2. CAPECITABINE (CAPECITABINE) [Suspect]
     Indication: PANCREATIC CARCINOMA
     Dosage: 2800 MG, Q2W, ORAL
     Route: 048
     Dates: start: 20060227, end: 20060412
  3. GEMCITABINE [Suspect]
     Indication: PANCREATIC CARCINOMA
     Dosage: 2180, INTRAVENOUS
     Route: 042
     Dates: start: 20060227, end: 20060405

REACTIONS (3)
  - BILE DUCT OBSTRUCTION [None]
  - COLITIS [None]
  - POSTOPERATIVE INFECTION [None]
